FAERS Safety Report 10030682 (Version 2)
Quarter: 2014Q1

REPORT INFORMATION
  Report Type: Spontaneous
  Country: US (occurrence: US)
  Receive Date: 20140323
  Receipt Date: 20140323
  Transmission Date: 20141002
  Serious: No
  Sender: FDA-Public Use
  Company Number: US-ALLERGAN-1400207US

PATIENT
  Age: 71 Year
  Sex: Female

DRUGS (6)
  1. LATISSE 0.03% [Suspect]
     Indication: GROWTH OF EYELASHES
     Dosage: 1 DROP TO EACH UPPER EYELID EVERY NIGHT
     Route: 061
  2. AMLODIPINE [Concomitant]
     Indication: HYPERTENSION
     Dosage: 5 MG, QD
     Route: 048
  3. LOSARTIN [Concomitant]
     Indication: HYPERTENSION
     Dosage: 100 MG, UNK
     Route: 048
  4. CELEBREX [Concomitant]
     Indication: BACK PAIN
     Dosage: UNK
     Route: 048
  5. LORTAB [Concomitant]
     Indication: BACK PAIN
     Dosage: UNK
     Route: 048
  6. GABAPENTIN [Concomitant]
     Indication: NEURALGIA
     Route: 048

REACTIONS (1)
  - Drug ineffective [Unknown]
